FAERS Safety Report 21770282 (Version 1)
Quarter: 2022Q4

REPORT INFORMATION
  Report Type: Report from Study
  Country: IT (occurrence: IT)
  Receive Date: 20221223
  Receipt Date: 20221223
  Transmission Date: 20230113
  Serious: Yes (Other)
  Sender: FDA-Public Use
  Company Number: None

PATIENT
  Age: 29 Year
  Sex: Male

DRUGS (2)
  1. ARIPIPRAZOLE [Suspect]
     Active Substance: ARIPIPRAZOLE
     Indication: Product used for unknown indication
     Route: 048
     Dates: start: 20221204, end: 20221204
  2. RISPERDAL [Suspect]
     Active Substance: RISPERIDONE
     Indication: Product used for unknown indication
     Dosage: DOSAGE: 3, UNIT OF MEASURE: MILLIEQUIVALENT,FREQUENCY OF ADMINISTRATION: TOTAL
     Route: 048
     Dates: start: 20221204, end: 20221204

REACTIONS (1)
  - Swelling [Recovered/Resolved]

NARRATIVE: CASE EVENT DATE: 20221204
